FAERS Safety Report 6259318-2 (Version None)
Quarter: 2009Q3

REPORT INFORMATION
  Report Type: 
  Country: None (occurrence: None)
  Receive Date: 20090702
  Receipt Date: 20090617
  Transmission Date: 20100115
  Serious: Yes (Death)
  Sender: FDA-Public Use
  Company Number: 2008AL010773

PATIENT
  Age: 73 Year
  Sex: Male
  Weight: 120.2032 kg

DRUGS (17)
  1. DIGOXIN [Suspect]
     Indication: CARDIAC DISORDER
     Dosage: 0.25MG, DAILY, PO
     Route: 048
  2. K-DUR [Concomitant]
  3. LOTREL [Concomitant]
  4. ASPIRIN [Concomitant]
  5. SINGULAIR [Concomitant]
  6. VYTORIN [Concomitant]
  7. GLUCOPHAGE [Concomitant]
  8. GLUCOTROL [Concomitant]
  9. LANTUS [Concomitant]
  10. FLOMAX [Concomitant]
  11. ATIVAN [Concomitant]
  12. TOPROL-XL [Concomitant]
  13. XOPENEX [Concomitant]
  14. NITROGLYCERIN [Concomitant]
  15. CYMBALTA [Concomitant]
  16. LORAZEPAM [Concomitant]
  17. HYDROCODONE BITARTRATE + ACETAMINOPHEN [Concomitant]

REACTIONS (8)
  - ANXIETY [None]
  - BLOOD PRESSURE INCREASED [None]
  - DYSPNOEA [None]
  - ECONOMIC PROBLEM [None]
  - FAMILY STRESS [None]
  - INJURY [None]
  - PAIN [None]
  - SOCIAL PROBLEM [None]
